FAERS Safety Report 6624466-1 (Version None)
Quarter: 2010Q1

REPORT INFORMATION
  Report Type: 
  Country: None (occurrence: None)
  Receive Date: 20100310
  Receipt Date: 20091020
  Transmission Date: 20100710
  Serious: No
  Sender: FDA-Public Use
  Company Number: US-BIOGENIDEC-2009BI033768

PATIENT
  Sex: Female

DRUGS (1)
  1. AVONEX [Suspect]
     Indication: MULTIPLE SCLEROSIS
     Route: 030
     Dates: start: 20090109

REACTIONS (6)
  - ANXIETY [None]
  - CHILLS [None]
  - DEPRESSION [None]
  - FEELING COLD [None]
  - INFLUENZA LIKE ILLNESS [None]
  - TEMPERATURE INTOLERANCE [None]
